FAERS Safety Report 7803252-0 (Version None)
Quarter: 2011Q4

REPORT INFORMATION
  Report Type: 
  Country: None (occurrence: None)
  Receive Date: 20111005
  Receipt Date: 20110922
  Transmission Date: 20120403
  Serious: Yes (Hospitalization)
  Sender: FDA-Public Use
  Company Number: 2010SP002288

PATIENT
  Age: 50 Year
  Sex: Female

DRUGS (7)
  1. ASPIRIN [Concomitant]
  2. CICLESONIDE [Suspect]
     Indication: RHINITIS PERENNIAL
     Dosage: 160 UG;QD;INHALATION
     Route: 055
     Dates: start: 20100420
  3. OMEGA-3 /01866101/ [Concomitant]
  4. PREMARNI /00073001/ [Concomitant]
  5. GABAPENTIN [Concomitant]
  6. TAMIFLU [Concomitant]
  7. IBUPROFEN [Concomitant]

REACTIONS (1)
  - CHEST PAIN [None]
